FAERS Safety Report 7399726-X (Version None)
Quarter: 2011Q2

REPORT INFORMATION
  Report Type: 
  Country: None (occurrence: None)
  Receive Date: 20110407
  Receipt Date: 20110328
  Transmission Date: 20111010
  Serious: Yes (Other)
  Sender: FDA-Public Use
  Company Number: US-ROCHE-768294

PATIENT
  Age: 75 Year
  Sex: Male

DRUGS (2)
  1. AVASTIN [Suspect]
     Dosage: DATES OF USE: LAST FIVE YEARS.
     Route: 031
  2. LUCENTIS [Suspect]
     Dosage: DATES OF USE: SINCE 2006, SEVERAL INJECTIONS.
     Route: 031
     Dates: start: 20060101

REACTIONS (2)
  - BLINDNESS UNILATERAL [None]
  - VISUAL IMPAIRMENT [None]
